FAERS Safety Report 17197876 (Version 1)
Quarter: 2019Q4

REPORT INFORMATION
  Report Type: Spontaneous
  Country: PL (occurrence: PL)
  Receive Date: 20191224
  Receipt Date: 20191224
  Transmission Date: 20200122
  Serious: Yes (Other)
  Sender: FDA-Public Use
  Company Number: PL-ROCHE-2459383

PATIENT
  Age: 43 Year
  Sex: Male
  Weight: 127 kg

DRUGS (5)
  1. COTELLIC [Suspect]
     Active Substance: COBIMETINIB
     Indication: METASTATIC MALIGNANT MELANOMA
     Route: 048
     Dates: start: 20190924, end: 20191010
  2. DIURAMID [Concomitant]
     Active Substance: ACETAZOLAMIDE
     Route: 048
     Dates: start: 20190712
  3. NEOPARIN [Concomitant]
     Active Substance: ENOXAPARIN SODIUM
     Indication: ANTICOAGULANT THERAPY
     Route: 048
     Dates: start: 20190729
  4. IBUPROFEN. [Concomitant]
     Active Substance: IBUPROFEN
     Dosage: FREQUENCY: 4 TABLETS
     Route: 048
     Dates: start: 20190930
  5. ZELBORAF [Suspect]
     Active Substance: VEMURAFENIB
     Indication: METASTATIC MALIGNANT MELANOMA
     Dosage: DOSE: 4X240MG, FREQUENCY: 2XDAY
     Route: 048
     Dates: start: 20190924, end: 20191010

REACTIONS (2)
  - Swelling face [Unknown]
  - Angioedema [Recovering/Resolving]

NARRATIVE: CASE EVENT DATE: 20191001
